FAERS Safety Report 8246293-4 (Version None)
Quarter: 2012Q1

REPORT INFORMATION
  Report Type: 
  Country: None (occurrence: None)
  Receive Date: 20120329
  Receipt Date: 20120329
  Transmission Date: 20120608
  Serious: Yes (Other)
  Sender: FDA-Public Use
  Company Number: None

PATIENT
  Age: 54 Year
  Sex: Female
  Weight: 52.6 kg

DRUGS (1)
  1. ESTRACE [Suspect]
     Indication: BREAST CANCER METASTATIC
     Dosage: ESTRADIOL (ESTRACE) 10MG 3 TIMES DAILY PER MOUTH
     Route: 048
     Dates: start: 20111104

REACTIONS (1)
  - SPINAL OSTEOARTHRITIS [None]
